FAERS Safety Report 13662537 (Version 2)
Quarter: 2017Q3

REPORT INFORMATION
  Report Type: Spontaneous
  Country: JP (occurrence: JP)
  Receive Date: 20170617
  Receipt Date: 20170815
  Transmission Date: 20171127
  Serious: Yes (Other)
  Sender: FDA-Public Use
  Company Number: JP-ELI_LILLY_AND_COMPANY-JP201706004878

PATIENT
  Age: 73 Year
  Sex: Male

DRUGS (3)
  1. ASPIRINE [Concomitant]
     Active Substance: ASPIRIN
     Indication: HEPARIN-INDUCED THROMBOCYTOPENIA
     Dosage: UNK UNK, UNKNOWN
     Route: 065
  2. SLONNON HI [Suspect]
     Active Substance: ARGATROBAN
     Indication: HEPARIN-INDUCED THROMBOCYTOPENIA
     Dosage: UNK UNK, UNKNOWN
     Route: 065
  3. PRASUGREL HYDROCHLORIDE [Suspect]
     Active Substance: PRASUGREL HYDROCHLORIDE
     Indication: HEPARIN-INDUCED THROMBOCYTOPENIA
     Dosage: UNK
     Route: 065

REACTIONS (2)
  - Bleeding time prolonged [Unknown]
  - Coagulopathy [Unknown]
